FAERS Safety Report 13428519 (Version 1)
Quarter: 2017Q2

REPORT INFORMATION
  Report Type: Spontaneous
  Country: US (occurrence: US)
  Receive Date: 20170411
  Receipt Date: 20170411
  Transmission Date: 20170830
  Serious: No
  Sender: FDA-Public Use
  Company Number: US-PERRIGO-17US001893

PATIENT
  Age: 70 Year
  Sex: Male
  Weight: 70.3 kg

DRUGS (1)
  1. PSEUDOEPHEDRINE HYDROCHLORIDE. [Suspect]
     Active Substance: PSEUDOEPHEDRINE HYDROCHLORIDE
     Indication: PARANASAL SINUS DISCOMFORT
     Dosage: 120 MG, SINGLE
     Route: 048
     Dates: start: 20170221, end: 20170221

REACTIONS (3)
  - Urinary tract discomfort [Recovering/Resolving]
  - Urine flow decreased [Recovering/Resolving]
  - Dysuria [Recovering/Resolving]

NARRATIVE: CASE EVENT DATE: 20170221
